FAERS Safety Report 5725590-8 (Version None)
Quarter: 2008Q2

REPORT INFORMATION
  Report Type: 
  Country: None (occurrence: None)
  Receive Date: 20080501
  Receipt Date: 20080407
  Transmission Date: 20081010
  Serious: No
  Sender: FDA-Public Use
  Company Number: US-BOEHRINGER INGELHEIM GMBH, GERMANY-2008-BP-05461BP

PATIENT
  Sex: Female

DRUGS (4)
  1. AGGRENOX [Suspect]
     Indication: CEREBROVASCULAR ACCIDENT
     Route: 048
     Dates: start: 20080110, end: 20080110
  2. FELODIPINE [Concomitant]
  3. INDERAL [Concomitant]
  4. ZANTAC [Concomitant]

REACTIONS (2)
  - HAEMATEMESIS [None]
  - HEADACHE [None]
